FAERS Safety Report 5824146-6 (Version None)
Quarter: 2008Q3

REPORT INFORMATION
  Report Type: 
  Country: None (occurrence: None)
  Receive Date: 20080722
  Receipt Date: 20080708
  Transmission Date: 20090109
  Serious: Yes (Hospitalization)
  Sender: FDA-Public Use
  Company Number: 1000000045

PATIENT
  Age: 35 Year
  Sex: Male

DRUGS (2)
  1. ESCITALOPRAM (ESCITALOPRAM OXALATE) (TABLETS) [Suspect]
     Indication: DEPRESSION
     Dosage: ORAL
     Route: 048
     Dates: start: 20040101, end: 20080321
  2. RIVOTRIL [Suspect]
     Indication: DEPRESSION
     Dosage: ORAL
     Route: 048
     Dates: start: 20040101, end: 20080321

REACTIONS (2)
  - DRUG ABUSE [None]
  - DRUG DEPENDENCE [None]
